FAERS Safety Report 10598381 (Version 2)
Quarter: 2015Q1

REPORT INFORMATION
  Report Type: Spontaneous
  Country: FR (occurrence: FR)
  Receive Date: 20141121
  Receipt Date: 20150206
  Transmission Date: 20150720
  Serious: Yes (Hospitalization)
  Sender: FDA-Public Use
  Company Number: FR-SA-2014SA156508

PATIENT
  Age: 68 Year
  Sex: Male

DRUGS (3)
  1. XARELTO [Suspect]
     Active Substance: RIVAROXABAN
     Route: 048
  2. KARDEGIC [Suspect]
     Active Substance: ASPIRIN LYSINE
     Route: 048
     Dates: end: 20141023
  3. PLAVIX [Suspect]
     Active Substance: CLOPIDOGREL BISULFATE
     Route: 048
     Dates: end: 20141023

REACTIONS (1)
  - Iron deficiency anaemia [Unknown]

NARRATIVE: CASE EVENT DATE: 20141023
